FAERS Safety Report 11849619 (Version 1)
Quarter: 2015Q4

REPORT INFORMATION
  Report Type: Spontaneous
  Country: CO (occurrence: None)
  Receive Date: 20151217
  Receipt Date: 20151217
  Transmission Date: 20160305
  Serious: Yes (Disabling)
  Sender: FDA-Public Use
  Company Number: None

PATIENT
  Age: 22 Year
  Sex: Male
  Weight: 60 kg

DRUGS (3)
  1. ISOFACE 20 MG PROCAPS S.A. BARRANQUILLA [Suspect]
     Active Substance: ISOTRETINOIN
     Indication: ACNE
     Dosage: 1 PILL ONCE DAILY
     Route: 048
     Dates: start: 20150101, end: 20151031
  2. CENTRUM (MULTIVITAMIN) Z-BEC ADVANCE (DIETARY SUPPLEMENT WITH ZINC, VITAMIN E AND SELENIUM) [Concomitant]
  3. FLUOXETINE [Concomitant]
     Active Substance: FLUOXETINE HYDROCHLORIDE

REACTIONS (6)
  - Suicidal ideation [None]
  - Fear [None]
  - Thinking abnormal [None]
  - Tremor [None]
  - Depression [None]
  - Feeling abnormal [None]

NARRATIVE: CASE EVENT DATE: 20151031
